FAERS Safety Report 7865815-6 (Version None)
Quarter: 2011Q4

REPORT INFORMATION
  Report Type: 
  Country: None (occurrence: None)
  Receive Date: 20111028
  Receipt Date: 20110302
  Transmission Date: 20120403
  Serious: No
  Sender: FDA-Public Use
  Company Number: US-GLAXOSMITHKLINE-A0916345A

PATIENT
  Age: 46 Year
  Sex: Female

DRUGS (4)
  1. ADVAIR DISKUS 100/50 [Suspect]
     Indication: CHRONIC OBSTRUCTIVE PULMONARY DISEASE
     Route: 055
     Dates: start: 20101228, end: 20110228
  2. PROAIR HFA [Concomitant]
  3. OXYBUTYNIN [Concomitant]
  4. INDERAL LA [Concomitant]

REACTIONS (1)
  - HYPOAESTHESIA [None]
